FAERS Safety Report 16424211 (Version 1)
Quarter: 2019Q2

REPORT INFORMATION
  Report Type: Spontaneous
  Country: US (occurrence: US)
  Receive Date: 20190613
  Receipt Date: 20190613
  Transmission Date: 20190711
  Serious: No
  Sender: FDA-Public Use
  Company Number: US-AMGEN-USASP2019092542

PATIENT

DRUGS (2)
  1. NEULASTA [Suspect]
     Active Substance: PEGFILGRASTIM
     Indication: PRODUCT USED FOR UNKNOWN INDICATION
     Dosage: UNK
     Route: 065
  2. NEULASTA [Suspect]
     Active Substance: PEGFILGRASTIM
     Dosage: UNK
     Route: 065

REACTIONS (9)
  - Oropharyngeal pain [Unknown]
  - Chills [Unknown]
  - Fatigue [Not Recovered/Not Resolved]
  - Bone pain [Unknown]
  - Diarrhoea [Unknown]
  - Contusion [Unknown]
  - Musculoskeletal chest pain [Unknown]
  - Pharyngeal swelling [Unknown]
  - White blood cell count abnormal [Unknown]
